FAERS Safety Report 24681997 (Version 2)
Quarter: 2024Q4

REPORT INFORMATION
  Report Type: Report from Study
  Country: CH (occurrence: CH)
  Receive Date: 20241130
  Receipt Date: 20241217
  Transmission Date: 20250115
  Serious: Yes (Hospitalization, Other)
  Sender: ABBVIE
  Company Number: CH-ABBVIE-5906801

PATIENT
  Age: 76 Year
  Sex: Male

DRUGS (5)
  1. CARBIDOPA\LEVODOPA [Suspect]
     Active Substance: CARBIDOPA\LEVODOPA
     Indication: Parkinson^s disease
     Dosage: LAST ADMIN DATE: AUG 2024?FREQUENCY TEXT: 16H THERAPY
     Route: 050
     Dates: start: 20240813
  2. CARBIDOPA\LEVODOPA [Suspect]
     Active Substance: CARBIDOPA\LEVODOPA
     Dosage: MD: 5 ML, CRD: 2.5 ML/H, ED: 1.0 ML?FREQUENCY TEXT: 16H THERAPY
     Route: 050
     Dates: start: 20240826, end: 20240903
  3. CARBIDOPA\LEVODOPA [Suspect]
     Active Substance: CARBIDOPA\LEVODOPA
     Dosage: MD: 5 ML, CRD: 3.2 ML/H, ED: 0.8 ML?FREQUENCY TEXT: 16H THERAPY
     Route: 050
     Dates: start: 20240903, end: 20240907
  4. CARBIDOPA\LEVODOPA [Suspect]
     Active Substance: CARBIDOPA\LEVODOPA
     Dosage: MD: 5 ML, CRD: 3.3 ML/H, ED: 0.8 ML?16H THERAPY
     Route: 050
     Dates: start: 20240907, end: 20240930
  5. CARBIDOPA\LEVODOPA [Suspect]
     Active Substance: CARBIDOPA\LEVODOPA
     Dosage: MD: 5 ML, CRD: 2.6 ML/H, ED: 0.8 ML?DOSE REDUCED 16H THERAPY
     Route: 050
     Dates: start: 20240930

REACTIONS (11)
  - Syncope [Not Recovered/Not Resolved]
  - Akinesia [Not Recovered/Not Resolved]
  - Fall [Not Recovered/Not Resolved]
  - Hallucination [Not Recovered/Not Resolved]
  - General physical health deterioration [Unknown]
  - Device loosening [Unknown]
  - Orthostatic hypotension [Not Recovered/Not Resolved]
  - Fatigue [Recovering/Resolving]
  - Cognitive disorder [Not Recovered/Not Resolved]
  - Bradykinesia [Not Recovered/Not Resolved]
  - Confusional state [Not Recovered/Not Resolved]

NARRATIVE: CASE EVENT DATE: 20240101
